FAERS Safety Report 4446412-1 (Version None)
Quarter: 2004Q3

REPORT INFORMATION
  Report Type: 
  Country: None (occurrence: None)
  Receive Date: 20040902
  Receipt Date: 20040819
  Transmission Date: 20050211
  Serious: Yes (Hospitalization)
  Sender: FDA-Public Use
  Company Number: 2004CG01253

PATIENT
  Age: 58 Year
  Sex: Female
  Weight: 65 kg

DRUGS (6)
  1. IRESSA [Suspect]
     Indication: BREAST CANCER
     Dosage: 250 MG QD PO
     Route: 048
     Dates: start: 20040311, end: 20040614
  2. NOLVADEX [Suspect]
     Indication: BREAST CANCER
     Dosage: 20 MG QD PO
     Route: 048
     Dates: start: 20040311, end: 20040614
  3. LEXOMIL [Concomitant]
  4. ACEBUTAMOL [Concomitant]
  5. ATHYMIL [Concomitant]
  6. LUTOS [Concomitant]

REACTIONS (1)
  - DEEP VEIN THROMBOSIS [None]
